FAERS Safety Report 13755637 (Version 1)
Quarter: 2017Q3

REPORT INFORMATION
  Report Type: Spontaneous
  Country: MX (occurrence: MX)
  Receive Date: 20170714
  Receipt Date: 20170714
  Transmission Date: 20171127
  Serious: Yes (Other)
  Sender: FDA-Public Use
  Company Number: MX-PFIZER INC-2017297893

PATIENT
  Sex: Female

DRUGS (1)
  1. DEPO-PROVERA [Suspect]
     Active Substance: MEDROXYPROGESTERONE ACETATE
     Dosage: UNK(150 MG/ML)
     Route: 030

REACTIONS (6)
  - Nausea [Unknown]
  - Skin lesion [Unknown]
  - Vertigo [Unknown]
  - Erythema [Unknown]
  - Dyspnoea [Unknown]
  - Headache [Unknown]
